FAERS Safety Report 6200143-6 (Version None)
Quarter: 2009Q2

REPORT INFORMATION
  Report Type: 
  Country: None (occurrence: None)
  Receive Date: 20090522
  Receipt Date: 20090511
  Transmission Date: 20091009
  Serious: Yes (Death)
  Sender: FDA-Public Use
  Company Number: JP-JNJFOC-20061005349

PATIENT
  Sex: Female

DRUGS (16)
  1. FINIBAX [Suspect]
     Route: 041
     Dates: start: 20061018, end: 20061019
  2. FINIBAX [Suspect]
     Indication: PNEUMONIA
     Route: 041
     Dates: start: 20061018, end: 20061019
  3. DOPRAM [Suspect]
     Indication: CHRONIC OBSTRUCTIVE PULMONARY DISEASE
     Route: 042
     Dates: start: 20061018, end: 20061018
  4. DOPRAM [Suspect]
     Indication: HYPERCAPNIA
     Route: 042
     Dates: start: 20061018, end: 20061018
  5. ERYTHROMYCIN LACTOBIONATE [Suspect]
     Indication: PNEUMONIA
     Route: 041
  6. AMINOPHYLLINE [Suspect]
     Indication: DYSPNOEA
     Route: 041
     Dates: start: 20061018, end: 20061018
  7. AMINOPHYLLINE [Suspect]
     Indication: CHRONIC OBSTRUCTIVE PULMONARY DISEASE
     Route: 041
     Dates: start: 20061018, end: 20061018
  8. CEFMETAZOLE [Suspect]
     Indication: PNEUMONIA
     Route: 065
  9. CEFMETAZOLE [Suspect]
     Indication: INFLAMMATION
     Route: 065
  10. CLARITHROMYCIN [Suspect]
     Indication: PNEUMONIA
     Route: 048
  11. CLARITHROMYCIN [Suspect]
     Indication: INFLAMMATION
     Route: 048
  12. MEROPENEM TRIHYDRATE [Concomitant]
     Indication: PNEUMONIA
     Route: 065
     Dates: start: 20061006, end: 20061018
  13. BISOLVON [Concomitant]
     Indication: SPUTUM RETENTION
     Route: 042
     Dates: start: 20061007, end: 20061018
  14. LASIX [Concomitant]
     Indication: CARDIAC FAILURE CONGESTIVE
     Route: 042
     Dates: start: 20061018, end: 20061018
  15. ERYTHROCIN [Concomitant]
     Indication: PNEUMONIA
     Route: 041
     Dates: start: 20061017, end: 20061018
  16. FLUCONAZOLE [Concomitant]
     Indication: FUNGAL INFECTION
     Route: 065

REACTIONS (4)
  - DEPRESSED LEVEL OF CONSCIOUSNESS [None]
  - HEPATIC FAILURE [None]
  - HEPATITIS FULMINANT [None]
  - RESPIRATORY FAILURE [None]
